FAERS Safety Report 7907417-9 (Version None)
Quarter: 2011Q4

REPORT INFORMATION
  Report Type: 
  Country: None (occurrence: None)
  Receive Date: 20111109
  Receipt Date: 20111109
  Transmission Date: 20120403
  Serious: Yes (Hospitalization)
  Sender: FDA-Public Use
  Company Number: None

PATIENT
  Age: 81 Year
  Sex: Male
  Weight: 81.8 kg

DRUGS (12)
  1. CENTRUM CARDIO [Concomitant]
  2. ASPIRIN [Concomitant]
  3. NITROGLYCERIN [Concomitant]
  4. TERAZOSIN HCL [Concomitant]
  5. ATORVASTATIN CALCIUM [Concomitant]
  6. OMEPRAZOLE [Concomitant]
  7. SERTRALINE HYDROCHLORIDE [Concomitant]
  8. NITROGLYCERN [Concomitant]
  9. CARVEDILOL [Concomitant]
  10. CILOSTAZOL [Concomitant]
  11. PRADAXA [Suspect]
     Indication: THROMBOSIS PROPHYLAXIS
     Dosage: 150MG TWICE DAILY ORAL (047)
     Route: 048
     Dates: start: 20110505, end: 20110511
  12. LEVOTHYROXINE SODIUM [Concomitant]

REACTIONS (1)
  - LOWER GASTROINTESTINAL HAEMORRHAGE [None]
